FAERS Safety Report 17813599 (Version 1)
Quarter: 2020Q2

REPORT INFORMATION
  Report Type: Spontaneous
  Country: US (occurrence: US)
  Receive Date: 20200521
  Receipt Date: 20200521
  Transmission Date: 20200714
  Serious: No
  Sender: FDA-Public Use
  Company Number: US-TEVA-2020-US-1239037

PATIENT
  Sex: Female

DRUGS (1)
  1. METRONIDAZOLE TEVA [Suspect]
     Active Substance: METRONIDAZOLE
     Route: 065

REACTIONS (5)
  - Product solubility abnormal [Unknown]
  - Vomiting [Unknown]
  - Retching [Unknown]
  - Product quality issue [Unknown]
  - Product taste abnormal [Unknown]
